FAERS Safety Report 18454576 (Version 1)
Quarter: 2020Q4

REPORT INFORMATION
  Report Type: Other
  Country: BR (occurrence: BR)
  Receive Date: 20201103
  Receipt Date: 20201103
  Transmission Date: 20210114
  Serious: Yes (Other)
  Sender: FDA-Public Use
  Company Number: BR-ROCHE-2683328

PATIENT
  Sex: Female

DRUGS (2)
  1. NUCALA [Concomitant]
     Active Substance: MEPOLIZUMAB
     Indication: PRODUCT USED FOR UNKNOWN INDICATION
  2. XOLAIR [Suspect]
     Active Substance: OMALIZUMAB
     Indication: ASTHMA
     Route: 065
     Dates: start: 20200406, end: 20200723

REACTIONS (2)
  - Asthmatic crisis [Not Recovered/Not Resolved]
  - Drug ineffective [Unknown]
